FAERS Safety Report 10076929 (Version 3)
Quarter: 2014Q2

REPORT INFORMATION
  Report Type: Report from Study
  Country: AU (occurrence: AU)
  Receive Date: 20140414
  Receipt Date: 20140501
  Transmission Date: 20141212
  Serious: Yes (Death, Hospitalization)
  Sender: FDA-Public Use
  Company Number: AU-GLAXOSMITHKLINE-B0872636D

PATIENT
  Age: 80 Year
  Sex: Male
  Weight: 87 kg

DRUGS (2)
  1. ELTROMBOPAG [Suspect]
     Indication: THROMBOCYTOPENIA
     Dates: start: 20130218, end: 20140402
  2. AZACITIDINE [Suspect]
     Indication: THROMBOCYTOPENIA
     Dosage: 75MGM2 CYCLIC
     Dates: start: 20130305, end: 20140321

REACTIONS (3)
  - Respiratory arrest [Fatal]
  - Atrial fibrillation [Fatal]
  - Localised infection [Recovered/Resolved with Sequelae]
